FAERS Safety Report 4398316-0 (Version None)
Quarter: 2004Q3

REPORT INFORMATION
  Report Type: 
  Country: None (occurrence: None)
  Receive Date: 20040712
  Receipt Date: 20040628
  Transmission Date: 20050211
  Serious: Yes (Hospitalization)
  Sender: FDA-Public Use
  Company Number: 2004043272

PATIENT
  Age: 49 Year
  Sex: Male

DRUGS (2)
  1. VIAGRA [Suspect]
     Indication: ILL-DEFINED DISORDER
     Dosage: 25 MG (25MG, AS NEEDED), ORAL
     Route: 048
     Dates: start: 20020601, end: 20040621
  2. KALETRA [Suspect]
     Indication: ILL-DEFINED DISORDER

REACTIONS (2)
  - DRUG INTERACTION [None]
  - RHABDOMYOLYSIS [None]
